FAERS Safety Report 9444274 (Version 1)
Quarter: 2013Q3

REPORT INFORMATION
  Report Type: Report from Study
  Country: US (occurrence: US)
  Receive Date: 20130807
  Receipt Date: 20130807
  Transmission Date: 20140515
  Serious: Yes (Death)
  Sender: FDA-Public Use
  Company Number: PHEH2013US016606

PATIENT
  Age: 68 Year
  Sex: Male

DRUGS (1)
  1. GLEEVEC [Suspect]
     Indication: MYELOPROLIFERATIVE DISORDER
     Dosage: UNK DAILY
     Route: 048
     Dates: start: 20130304

REACTIONS (1)
  - Death [Fatal]
